FAERS Safety Report 8430119-X (Version None)
Quarter: 2012Q2

REPORT INFORMATION
  Report Type: 
  Country: None (occurrence: None)
  Receive Date: 20120612
  Receipt Date: 20120604
  Transmission Date: 20120825
  Serious: No
  Sender: FDA-Public Use
  Company Number: US-ROXANE LABORATORIES, INC.-2012-RO-01367RO

PATIENT
  Sex: Male

DRUGS (2)
  1. FLUTICASONE FUROATE [Suspect]
     Indication: NASAL POLYPS
     Route: 045
  2. FINASTERIDE [Suspect]
     Indication: BENIGN PROSTATIC HYPERPLASIA

REACTIONS (2)
  - DYSPHONIA [None]
  - OROPHARYNGEAL PAIN [None]
